FAERS Safety Report 7657545-0 (Version None)
Quarter: 2011Q3

REPORT INFORMATION
  Report Type: 
  Country: None (occurrence: None)
  Receive Date: 20110804
  Receipt Date: 20110726
  Transmission Date: 20111222
  Serious: Yes (Other)
  Sender: FDA-Public Use
  Company Number: NL-AMGEN-NLDSP2011034921

PATIENT
  Age: 74 Year
  Sex: Female
  Weight: 66.5 kg

DRUGS (8)
  1. PANTOZOL                           /01263202/ [Concomitant]
     Route: 048
  2. ASCAL                              /00002702/ [Concomitant]
     Route: 048
  3. SIMVASTATIN [Concomitant]
     Route: 048
  4. AMLODIPINE [Concomitant]
     Route: 048
  5. TEMAZEPAM [Concomitant]
     Route: 048
  6. PROLIA [Suspect]
     Indication: OSTEOPOROSIS
     Dosage: 60 MG, ONE TIME DOSE
     Route: 058
     Dates: start: 20110501, end: 20110701
  7. LISINOPRIL [Concomitant]
     Route: 048
  8. CAD [Concomitant]
     Route: 048

REACTIONS (2)
  - CELLULITIS [None]
  - NECROBIOSIS LIPOIDICA DIABETICORUM [None]
